FAERS Safety Report 16816188 (Version 1)
Quarter: 2019Q3

REPORT INFORMATION
  Report Type: Spontaneous
  Country: US (occurrence: US)
  Receive Date: 20190725
  Receipt Date: 20190725
  Transmission Date: 20191005
  Serious: Yes (Life-Threatening)
  Sender: FDA-Public Use
  Company Number: None

PATIENT
  Age: 56 Year
  Sex: Female
  Weight: 77.11 kg

DRUGS (15)
  1. MELOXICAMM [Concomitant]
  2. HYDROCORTISONE CREAM TOPIC [Concomitant]
  3. KETOCANAZOLE TOPIC [Concomitant]
  4. VITAMIN B-COMPLEX [Concomitant]
     Active Substance: DEXPANTHENOL\NIACINAMIDE\PYRIDOXINE HYDROCHLORIDE\RIBOFLAVIN 5^-PHOSPHATE SODIUM\THIAMINE HYDROCHLORIDE
  5. LYRICA [Concomitant]
     Active Substance: PREGABALIN
  6. CYCLOBENZAMINE [Concomitant]
  7. DOXYCYCLINE. [Concomitant]
     Active Substance: DOXYCYCLINE
  8. METOPROLOL. [Concomitant]
     Active Substance: METOPROLOL
  9. PROPIPEXOLE [Concomitant]
  10. FISH OIL CAPS [Concomitant]
  11. LOSARTAN 100/25MG [Suspect]
     Active Substance: LOSARTAN
     Indication: BLOOD PRESSURE INCREASED
     Dosage: ?          QUANTITY:1 DF DOSAGE FORM;?
     Route: 048
     Dates: start: 2010
  12. AMLODIPINE [Concomitant]
     Active Substance: AMLODIPINE BESYLATE
  13. TRAMADOL. [Concomitant]
     Active Substance: TRAMADOL
  14. ATORVASTATIN [Concomitant]
     Active Substance: ATORVASTATIN
  15. CALCIUM [Concomitant]
     Active Substance: CALCIUM

REACTIONS (2)
  - Recalled product administered [None]
  - Anxiety [None]

NARRATIVE: CASE EVENT DATE: 201902
